FAERS Safety Report 5508003-0 (Version None)
Quarter: 2007Q4

REPORT INFORMATION
  Report Type: 
  Country: None (occurrence: None)
  Receive Date: 20071031
  Receipt Date: 20070912
  Transmission Date: 20080405
  Serious: No
  Sender: FDA-Public Use
  Company Number: 200712296BWH

PATIENT
  Age: 64 Year
  Sex: Male

DRUGS (8)
  1. NEXAVAR [Suspect]
     Indication: METASTASES TO LUNG
     Dosage: 400 MG, BID, ORAL
     Route: 048
     Dates: start: 20070618, end: 20070716
  2. NEXAVAR [Suspect]
     Indication: PAPILLARY THYROID CANCER
     Dosage: 400 MG, BID, ORAL
     Route: 048
     Dates: start: 20070618, end: 20070716
  3. LOVASTATIN [Concomitant]
  4. ALLOPURINOL [Concomitant]
  5. SYNTHROID [Concomitant]
  6. LISINOPRIL [Concomitant]
  7. METFORMIN HCL [Concomitant]
  8. ASPIRIN [Concomitant]

REACTIONS (6)
  - BLOOD GLUCOSE INCREASED [None]
  - BLOOD PRESSURE INCREASED [None]
  - BREAST TENDERNESS [None]
  - HYPERKERATOSIS [None]
  - NIPPLE EXUDATE BLOODY [None]
  - PAIN IN EXTREMITY [None]
